FAERS Safety Report 6565014-4 (Version None)
Quarter: 2010Q1

REPORT INFORMATION
  Report Type: 
  Country: None (occurrence: None)
  Receive Date: 20100201
  Receipt Date: 20100119
  Transmission Date: 20100710
  Serious: Yes (Death, Hospitalization)
  Sender: FDA-Public Use
  Company Number: US-BAYER-201011227NA

PATIENT
  Age: 74 Year
  Sex: Female

DRUGS (2)
  1. BETASERON [Suspect]
     Indication: DRUG USE FOR UNKNOWN INDICATION
     Route: 058
     Dates: start: 19930101, end: 20080501
  2. COPAXONE [Concomitant]

REACTIONS (3)
  - FALL [None]
  - LUNG DISORDER [None]
  - UPPER LIMB FRACTURE [None]
